FAERS Safety Report 7234270-1 (Version None)
Quarter: 2011Q1

REPORT INFORMATION
  Report Type: 
  Country: None (occurrence: None)
  Receive Date: 20110119
  Receipt Date: 20110106
  Transmission Date: 20110831
  Serious: Yes (Other)
  Sender: FDA-Public Use
  Company Number: FR-JNJFOC-20101208402

PATIENT
  Age: 55 Year
  Sex: Female

DRUGS (2)
  1. ZALDIAR [Suspect]
     Indication: ARTHRALGIA
     Route: 048
  2. DIMEGAN [Suspect]
     Indication: PRODUCT USED FOR UNKNOWN INDICATION
     Route: 048

REACTIONS (2)
  - OCULAR HYPERTENSION [None]
  - NARROW ANTERIOR CHAMBER ANGLE [None]
